FAERS Safety Report 14240023 (Version 2)
Quarter: 2018Q1

REPORT INFORMATION
  Report Type: Spontaneous
  Country: JP (occurrence: JP)
  Receive Date: 20171130
  Receipt Date: 20180215
  Transmission Date: 20180508
  Serious: Yes (Death, Life-Threatening, Hospitalization, Disabling, Other)
  Sender: FDA-Public Use
  Company Number: JP-ELI_LILLY_AND_COMPANY-JP201711012778

PATIENT
  Age: 54 Year
  Sex: Male
  Weight: 82 kg

DRUGS (4)
  1. ERBITUX [Suspect]
     Active Substance: CETUXIMAB
     Indication: RECTAL CANCER
     Dosage: UNK UNK, UNKNOWN
     Route: 042
     Dates: start: 20130307, end: 20130507
  2. L-LEUCOVORIN [Suspect]
     Active Substance: LEUCOVORIN
     Indication: RECTAL CANCER
     Dosage: UNK UNK, UNKNOWN
     Route: 065
  3. 5 FU [Suspect]
     Active Substance: FLUOROURACIL
     Indication: RECTAL CANCER
     Dosage: UNK UNK, UNKNOWN
     Route: 065
     Dates: start: 20130307, end: 20130507
  4. TOPOTECIN [Suspect]
     Active Substance: IRINOTECAN HYDROCHLORIDE
     Indication: RECTAL CANCER
     Dosage: UNK UNK, UNKNOWN
     Route: 041
     Dates: start: 20130307, end: 20130507

REACTIONS (7)
  - Pseudomembranous colitis [Not Recovered/Not Resolved]
  - Intestinal obstruction [Recovered/Resolved]
  - Disseminated intravascular coagulation [Recovered/Resolved]
  - Multiple organ dysfunction syndrome [Fatal]
  - Acute kidney injury [Not Recovered/Not Resolved]
  - Neutropenia [Recovered/Resolved]
  - Sepsis [Recovered/Resolved]

NARRATIVE: CASE EVENT DATE: 20130515
